FAERS Safety Report 6295962 (Version 18)
Quarter: 2013Q3

REPORT INFORMATION
  Report Type: Spontaneous
  Country: US (occurrence: US)
  Receive Date: 20070425
  Receipt Date: 20130928
  Transmission Date: 20140515
  Serious: Yes (Death, Hospitalization, Other)
  Sender: FDA-Public Use
  Company Number: PHEH2007US05503

PATIENT
  Sex: Male
  Weight: 88.44 kg

DRUGS (24)
  1. ZOMETA [Suspect]
     Indication: PLASMA CELL MYELOMA
     Route: 042
     Dates: start: 20040921, end: 200605
  2. STEROIDS NOS [Suspect]
  3. DEXAMETHASONE [Suspect]
     Indication: PLASMA CELL MYELOMA
     Dates: start: 20031219
  4. REVLIMID [Suspect]
  5. CHEMOTHERAPEUTICS NOS [Concomitant]
  6. THALIDOMIDE [Concomitant]
     Dates: start: 20031219
  7. MELPHALAN [Concomitant]
     Dates: start: 2004
  8. LENALIDOMIDE [Concomitant]
     Dosage: 25 MG
     Dates: start: 20061121
  9. HYDROCHLOROTHIAZIDE [Concomitant]
     Dosage: 25 MG, QD
  10. ACEON [Concomitant]
     Dates: start: 200512
  11. ACTOS                                   /CAN/ [Concomitant]
  12. VYTORIN [Concomitant]
  13. METFORMIN [Concomitant]
     Dosage: 500 MG
  14. MULTIVITAMINS [Concomitant]
  15. PENICILLIN V POTASSIUM [Concomitant]
     Dosage: 500 MG
  16. LEVOFLOXACIN [Concomitant]
  17. LEVAQUIN [Concomitant]
     Dosage: 500 MG
  18. LORTAB [Concomitant]
  19. ACYCLOVIR [Concomitant]
  20. HYDROCODONE [Concomitant]
  21. CIPROFLOXACIN [Concomitant]
  22. FLAGYL [Concomitant]
  23. IRON SULFATE [Concomitant]
  24. ALLOPURINOL [Concomitant]

REACTIONS (106)
  - Plasma cell myeloma [Fatal]
  - Renal failure chronic [Fatal]
  - Diabetes mellitus [Fatal]
  - Hyperglycaemia [Fatal]
  - Pneumonia [Fatal]
  - Diverticulitis [Unknown]
  - Diverticulum [Unknown]
  - Osteonecrosis of jaw [Unknown]
  - Injury [Unknown]
  - Pain [Unknown]
  - Anxiety [Unknown]
  - Gingival erosion [Recovered/Resolved]
  - Primary sequestrum [Recovered/Resolved]
  - Pain in jaw [Unknown]
  - Exposed bone in jaw [Recovered/Resolved]
  - Plasma cell myeloma recurrent [Unknown]
  - Atypical pneumonia [Unknown]
  - Bronchopneumonia [Unknown]
  - Bronchitis [Unknown]
  - Chest wall mass [Unknown]
  - Vision blurred [Unknown]
  - Toxicity to various agents [Recovered/Resolved]
  - Haemangioma of bone [Unknown]
  - Abdominal pain lower [Unknown]
  - Arthritis [Unknown]
  - Hyperuricaemia [Unknown]
  - Blood pressure fluctuation [Unknown]
  - Blood pressure increased [Recovered/Resolved]
  - Disease progression [Unknown]
  - Skin papilloma [Unknown]
  - Back pain [Unknown]
  - Fatigue [Unknown]
  - Skin lesion [Unknown]
  - Nausea [Unknown]
  - Gout [Unknown]
  - Asthenia [Recovered/Resolved]
  - Appetite disorder [Recovered/Resolved]
  - Ear pain [Unknown]
  - Pneumonia viral [Unknown]
  - Cough [Unknown]
  - Hyperhidrosis [Unknown]
  - Headache [Unknown]
  - Hallucination [Unknown]
  - Dyspnoea [Unknown]
  - Malaise [Unknown]
  - Pyrexia [Unknown]
  - Hypoaesthesia [Unknown]
  - Radiculopathy [Unknown]
  - Fracture [Unknown]
  - Intervertebral disc protrusion [Unknown]
  - Osteoarthritis [Unknown]
  - Comminuted fracture [Unknown]
  - Malignant melanoma [Unknown]
  - Second primary malignancy [Unknown]
  - Pulmonary mass [Unknown]
  - Cardiomegaly [Unknown]
  - Lung infiltration [Unknown]
  - Angiopathy [Unknown]
  - Gastrooesophageal reflux disease [Unknown]
  - Rib deformity [Unknown]
  - Sinus bradycardia [Unknown]
  - Bone density decreased [Unknown]
  - Osteolysis [Unknown]
  - Pathological fracture [Unknown]
  - Umbilical hernia [Unknown]
  - Bone pain [Unknown]
  - Neuropathy peripheral [Unknown]
  - Spinal osteoarthritis [Unknown]
  - Foot fracture [Unknown]
  - Hypoalbuminaemia [Unknown]
  - Otitis externa [Unknown]
  - Depression [Unknown]
  - Intervertebral disc space narrowing [Unknown]
  - Aortic calcification [Unknown]
  - Proteinuria [Unknown]
  - Sleep apnoea syndrome [Unknown]
  - Renal failure acute [Unknown]
  - Nephropathy [Unknown]
  - Pancytopenia [Unknown]
  - Thrombocytopenia [Unknown]
  - Epistaxis [Unknown]
  - Erectile dysfunction [Unknown]
  - Escherichia sepsis [Unknown]
  - Hypotension [Unknown]
  - Stomatitis [Unknown]
  - Sinus tachycardia [Unknown]
  - Spinal compression fracture [Unknown]
  - Neutropenic sepsis [Unknown]
  - Arrhythmia [Unknown]
  - Dysthymic disorder [Unknown]
  - Influenza [Unknown]
  - Hypoxia [Unknown]
  - Erythema [Unknown]
  - Oedema peripheral [Unknown]
  - Pain in extremity [Unknown]
  - Arthralgia [Unknown]
  - Arthropathy [Unknown]
  - Cardiac failure congestive [Unknown]
  - Metabolic acidosis [Unknown]
  - Hyperkalaemia [Unknown]
  - Streptococcal bacteraemia [Unknown]
  - Left ventricular hypertrophy [Unknown]
  - Vertigo [Unknown]
  - Ventricular hypokinesia [Unknown]
  - Mitral valve incompetence [Unknown]
  - Sensitivity of teeth [Unknown]
